FAERS Safety Report 8443932-X (Version None)
Quarter: 2012Q2

REPORT INFORMATION
  Report Type: 
  Country: None (occurrence: None)
  Receive Date: 20120323
  Receipt Date: 20110809
  Transmission Date: 20120825
  Serious: Yes (Hospitalization)
  Sender: FDA-Public Use
  Company Number: 163-21880-11062228

PATIENT
  Age: 70 Year
  Sex: Male

DRUGS (6)
  1. WARFARIN SODIUM [Concomitant]
  2. DEXAMETHASONE [Concomitant]
  3. METOPROLOL TARTRATE [Concomitant]
  4. AREDIA [Concomitant]
  5. REVLIMID [Suspect]
     Indication: MULTIPLE MYELOMA
     Dosage: 25 MG, DAILY 21/28, PO
     Route: 048
     Dates: start: 20110527, end: 20110609
  6. TRANSFUSION (BLOOD AND RELATED PRODUCTS) (UNKNOWN) [Concomitant]

REACTIONS (2)
  - SUPRAVENTRICULAR TACHYCARDIA [None]
  - ANAEMIA [None]
